FAERS Safety Report 7876670-2 (Version None)
Quarter: 2011Q4

REPORT INFORMATION
  Report Type: 
  Country: None (occurrence: None)
  Receive Date: 20111031
  Receipt Date: 20111020
  Transmission Date: 20120403
  Serious: Yes (Other)
  Sender: FDA-Public Use
  Company Number: US-BAYER-200934045NA

PATIENT
  Age: 46 Year
  Sex: Female
  Weight: 133.18 kg

DRUGS (18)
  1. YASMIN [Suspect]
     Indication: MENSTRUATION IRREGULAR
     Dosage: 3-.03 MG
     Route: 048
     Dates: start: 20050301, end: 20080928
  2. SKELAXIN [Concomitant]
     Route: 065
  3. EFFEXOR XR [Concomitant]
     Route: 065
  4. ACETAMINOPHEN W/ CODEINE [Concomitant]
     Route: 065
  5. DROSPIRENONE AND ETHINYL ESTRADIOL [Suspect]
     Indication: MENSTRUATION IRREGULAR
     Dosage: 3-.03 MG
     Route: 048
     Dates: start: 20080929, end: 20081128
  6. ASCORBIC ACID [Concomitant]
     Dosage: UNK
     Dates: start: 20050101
  7. DYAZIDE [Concomitant]
  8. EFFEXOR [Concomitant]
     Indication: DEPRESSION
     Dosage: UNK
     Dates: start: 20030101
  9. IBUPROFEN [Concomitant]
     Route: 065
  10. LISINOPRIL [Concomitant]
     Route: 065
  11. TRIAMTERENE AND HYDROCHLOROTHIAZID [Concomitant]
     Route: 065
  12. CIPROFLOXACIN [Concomitant]
     Route: 065
  13. OXYCODONE HCL AND ACETAMINOPHEN [Concomitant]
     Route: 065
  14. METHYLPREDNISOLONE [Concomitant]
     Route: 065
  15. VICODIN [Concomitant]
     Indication: KNEE OPERATION
     Route: 048
     Dates: start: 20080701
  16. APAP TAB [Concomitant]
     Route: 065
  17. LEVAQUIN [Concomitant]
     Route: 065
  18. TRAMADOL HCL [Concomitant]
     Route: 065

REACTIONS (5)
  - ANXIETY [None]
  - DEEP VEIN THROMBOSIS [None]
  - OEDEMA PERIPHERAL [None]
  - OEDEMA [None]
  - PAIN IN EXTREMITY [None]
